FAERS Safety Report 7059995-2 (Version None)
Quarter: 2010Q4

REPORT INFORMATION
  Report Type: 
  Country: None (occurrence: None)
  Receive Date: 20101025
  Receipt Date: 20101021
  Transmission Date: 20110411
  Serious: Yes (Death)
  Sender: FDA-Public Use
  Company Number: US-JNJFOC-20071001827

PATIENT
  Age: 20 Month

DRUGS (1)
  1. DEXTROMETHORPHAN [Suspect]
     Indication: UPPER RESPIRATORY TRACT INFECTION

REACTIONS (2)
  - OVERDOSE [None]
  - WRONG DRUG ADMINISTERED [None]
